FAERS Safety Report 20318843 (Version 3)
Quarter: 2022Q1

REPORT INFORMATION
  Report Type: Report from Study
  Country: CL (occurrence: CL)
  Receive Date: 20220110
  Receipt Date: 20220312
  Transmission Date: 20220423
  Serious: Yes (Life-Threatening, Hospitalization, Other)
  Sender: FDA-Public Use
  Company Number: CL-NOVARTISPH-NVSC2022CL003764

PATIENT
  Age: 18 Year
  Sex: Male
  Weight: 41 kg

DRUGS (1)
  1. OMNITROPE [Suspect]
     Active Substance: SOMATROPIN
     Indication: Growth hormone deficiency
     Dosage: 5 MG/1.5 MG/ 4.5 IU QD
     Route: 058
     Dates: start: 20200424

REACTIONS (3)
  - Illness [Unknown]
  - Ill-defined disorder [Unknown]
  - Gastric disorder [Unknown]

NARRATIVE: CASE EVENT DATE: 20210727
